FAERS Safety Report 5356086-3 (Version None)
Quarter: 2007Q2

REPORT INFORMATION
  Report Type: 
  Country: None (occurrence: None)
  Receive Date: 20070613
  Receipt Date: 20070601
  Transmission Date: 20071010
  Serious: Yes (Other)
  Sender: FDA-Public Use
  Company Number: US-PFIZER INC-2007027018

PATIENT
  Age: 70 Year
  Sex: Female

DRUGS (16)
  1. LIPITOR [Suspect]
     Indication: HYPERLIPIDAEMIA
     Route: 048
     Dates: start: 20040519, end: 20070301
  2. AMITRIPTYLINE HCL [Suspect]
     Route: 048
  3. FOSAMAX [Suspect]
     Route: 048
  4. AVANDIA [Suspect]
     Route: 048
  5. CITALOPRAM HYDROBROMIDE [Concomitant]
     Route: 048
  6. ASPIRIN [Concomitant]
     Route: 048
  7. CLOBETASOL PROPIONATE [Concomitant]
     Route: 061
  8. NYSTATIN [Concomitant]
     Route: 061
  9. ECONAZOLE NITRATE [Concomitant]
     Route: 061
  10. DIPROLENE [Concomitant]
     Route: 061
  11. KETOCONAZOLE [Concomitant]
     Route: 061
  12. NORVASC [Concomitant]
     Route: 048
  13. CELEBREX [Concomitant]
     Route: 048
  14. METFORMIN HCL [Concomitant]
     Route: 048
  15. LEVOXYL [Concomitant]
     Route: 048
  16. COZAAR [Concomitant]
     Route: 048

REACTIONS (4)
  - CYSTOCELE REPAIR [None]
  - FOOT OPERATION [None]
  - GAIT DISTURBANCE [None]
  - MUSCULAR WEAKNESS [None]
